FAERS Safety Report 6243383-2 (Version None)
Quarter: 2009Q2

REPORT INFORMATION
  Report Type: 
  Country: None (occurrence: None)
  Receive Date: 20090617
  Receipt Date: 20080414
  Transmission Date: 20091009
  Serious: No
  Sender: FDA-Public Use
  Company Number: 274207

PATIENT
  Age: 51 Year
  Sex: Female

DRUGS (5)
  1. LEVEMIR [Suspect]
     Indication: INSULIN-REQUIRING TYPE 2 DIABETES MELLITUS
     Dosage: SUBCUTANEOUS
     Route: 058
     Dates: start: 20070826
  2. NOVOLOG [Suspect]
     Indication: BLOOD INSULIN
     Dosage: 50 IU, TID, SUBCUTANEOUS
     Route: 058
     Dates: start: 20070901
  3. NOVOLOG [Suspect]
     Indication: INSULIN-REQUIRING TYPE 2 DIABETES MELLITUS
     Dosage: 50 IU, TID, SUBCUTANEOUS
     Route: 058
     Dates: start: 20070901
  4. NOVOLIN N [Suspect]
     Indication: BLOOD INSULIN
     Dosage: 50 IU, QD, SUBCUTANEOUS
     Route: 058
     Dates: start: 20080101
  5. NOVOLIN N [Suspect]
     Indication: INSULIN-REQUIRING TYPE 2 DIABETES MELLITUS
     Dosage: 50 IU, QD, SUBCUTANEOUS
     Route: 058
     Dates: start: 20080101

REACTIONS (4)
  - INJECTION SITE ERYTHEMA [None]
  - INJECTION SITE HAEMATOMA [None]
  - INJECTION SITE NODULE [None]
  - URTICARIA [None]
